FAERS Safety Report 19883264 (Version 1)
Quarter: 2021Q3

REPORT INFORMATION
  Report Type: Spontaneous
  Country: US (occurrence: US)
  Receive Date: 20210926
  Receipt Date: 20210926
  Transmission Date: 20211014
  Serious: Yes (Other)
  Sender: FDA-Public Use
  Company Number: US-TEVA-2021-US-1956679

PATIENT
  Age: 34 Year
  Sex: Female

DRUGS (3)
  1. JUNEL FE 1.5/30 [Suspect]
     Active Substance: ETHINYL ESTRADIOL\NORETHINDRONE ACETATE
     Dosage: ONE TABLET AT NIGHT, BEGINS HER MEDICATION THE DAY AFTER HER MENSTRUAL CYCLE STOPS
     Route: 065
     Dates: start: 20210908, end: 20210913
  2. JUNEL FE 1.5/30 [Suspect]
     Active Substance: ETHINYL ESTRADIOL\NORETHINDRONE ACETATE
     Dosage: TWO TABLETS THIS MORNING
     Route: 065
     Dates: start: 20210916
  3. JUNEL FE 1.5/30 [Suspect]
     Active Substance: ETHINYL ESTRADIOL\NORETHINDRONE ACETATE
     Indication: CONTRACEPTION
     Dosage: ONE TABLET AT NIGHT, BEGINS HER MEDICATION THE DAY AFTER HER MENSTRUAL CYCLE STOPS
     Route: 065
     Dates: start: 2021

REACTIONS (3)
  - Haemorrhage [Unknown]
  - Product dose omission in error [Unknown]
  - Inappropriate schedule of product administration [Unknown]

NARRATIVE: CASE EVENT DATE: 20210914
